FAERS Safety Report 7485028-X (Version None)
Quarter: 2011Q2

REPORT INFORMATION
  Report Type: 
  Country: None (occurrence: None)
  Receive Date: 20110517
  Receipt Date: 20110503
  Transmission Date: 20111010
  Serious: Yes (Hospitalization)
  Sender: FDA-Public Use
  Company Number: US-ROCHE-775618

PATIENT
  Sex: Female
  Weight: 74 kg

DRUGS (3)
  1. HERCEPTIN [Suspect]
     Route: 042
     Dates: start: 20101026
  2. TAXOTERE [Suspect]
     Route: 065
  3. CARBOPLATIN [Suspect]
     Route: 065

REACTIONS (5)
  - VOMITING [None]
  - CARDIAC FAILURE CONGESTIVE [None]
  - DEHYDRATION [None]
  - HYPOVOLAEMIA [None]
  - ACUTE RESPIRATORY FAILURE [None]
